FAERS Safety Report 4953409-1 (Version None)
Quarter: 2006Q1

REPORT INFORMATION
  Report Type: 
  Country: None (occurrence: None)
  Receive Date: 20060131
  Receipt Date: 20050311
  Transmission Date: 20060701
  Serious: Yes (Hospitalization)
  Sender: FDA-Public Use
  Company Number: 8007310

PATIENT
  Age: 9 Year
  Sex: Female
  Weight: 32.72 kg

DRUGS (6)
  1. KEPPRA [Suspect]
     Indication: CONVULSION
     Dosage: 2250 MG /D PO
     Route: 048
     Dates: start: 20021201, end: 20040801
  2. KEPPRA [Suspect]
     Indication: CONVULSION
     Dosage: 3000 MG /D PO
     Route: 048
     Dates: start: 20040801, end: 20040901
  3. KEPPRA [Suspect]
     Indication: CONVULSION
     Dosage: 1000 MG 4/D PO
     Route: 048
     Dates: start: 20040901
  4. TRILEPTAL [Concomitant]
  5. ATIVAN [Concomitant]
  6. DILANTIN [Concomitant]

REACTIONS (3)
  - ANTICONVULSANT DRUG LEVEL DECREASED [None]
  - CONVULSION [None]
  - PRECOCIOUS PUBERTY [None]
